FAERS Safety Report 8318801-6 (Version None)
Quarter: 2012Q2

REPORT INFORMATION
  Report Type: 
  Country: None (occurrence: None)
  Receive Date: 20120427
  Receipt Date: 20120420
  Transmission Date: 20120825
  Serious: No
  Sender: FDA-Public Use
  Company Number: US-BAYER-2012-040240

PATIENT
  Sex: Female

DRUGS (1)
  1. ALEVE [Suspect]
     Indication: DYSMENORRHOEA
     Dosage: UNK
     Route: 048

REACTIONS (2)
  - DYSMENORRHOEA [None]
  - ABDOMINAL DISTENSION [None]
